FAERS Safety Report 7818948-4 (Version None)
Quarter: 2011Q4

REPORT INFORMATION
  Report Type: 
  Country: None (occurrence: None)
  Receive Date: 20111018
  Receipt Date: 20111006
  Transmission Date: 20120403
  Serious: Yes (Other)
  Sender: FDA-Public Use
  Company Number: BR-JNJFOC-20111003509

PATIENT
  Age: 75 Year
  Sex: Female

DRUGS (1)
  1. REMICADE [Suspect]
     Indication: RHEUMATOID ARTHRITIS
     Route: 042

REACTIONS (5)
  - PERIPHERAL COLDNESS [None]
  - GENERALISED ERYTHEMA [None]
  - HYPERSENSITIVITY [None]
  - FEELING HOT [None]
  - NAUSEA [None]
